FAERS Safety Report 10489345 (Version 1)
Quarter: 2014Q4

REPORT INFORMATION
  Report Type: Spontaneous
  Country: GB (occurrence: GB)
  Receive Date: 20141002
  Receipt Date: 20141002
  Transmission Date: 20150528
  Serious: Yes (Life-Threatening)
  Sender: FDA-Public Use
  Company Number: GB-ASTRAZENECA-2014SE72583

PATIENT
  Age: 48 Year
  Sex: Female
  Weight: 66 kg

DRUGS (1)
  1. PROPOFOL. [Suspect]
     Active Substance: PROPOFOL
     Indication: INDUCTION OF ANAESTHESIA
     Route: 042

REACTIONS (2)
  - Injection site coldness [Unknown]
  - Injection site pain [Recovered/Resolved]
